FAERS Safety Report 17885399 (Version 1)
Quarter: 2020Q2

REPORT INFORMATION
  Report Type: Spontaneous
  Country: US (occurrence: US)
  Receive Date: 20200611
  Receipt Date: 20200611
  Transmission Date: 20200714
  Serious: Yes (Other)
  Sender: FDA-Public Use
  Company Number: US-SEPTODONT-202005806

PATIENT
  Sex: Male

DRUGS (1)
  1. CARBOCAINE WITH NEO-COBEFRIN [Suspect]
     Active Substance: LEVONORDEFRIN\MEPIVACAINE HYDROCHLORIDE
     Indication: DENTAL LOCAL ANAESTHESIA
     Dosage: INJECTED 1 - 2 CARPULES
     Route: 004

REACTIONS (6)
  - Drug ineffective [Recovered/Resolved]
  - Erythema [Unknown]
  - Ocular hyperaemia [Unknown]
  - Neuropathy peripheral [Recovered/Resolved]
  - Periorbital oedema [Unknown]
  - Pruritus [Unknown]
